FAERS Safety Report 7807955-3 (Version None)
Quarter: 2011Q4

REPORT INFORMATION
  Report Type: 
  Country: None (occurrence: None)
  Receive Date: 20111011
  Receipt Date: 20111011
  Transmission Date: 20120403
  Serious: Yes (Hospitalization)
  Sender: FDA-Public Use
  Company Number: None

PATIENT

DRUGS (1)
  1. MIFEPREX [Suspect]
     Indication: MENINGIOMA
     Dosage: 5 MG TO/OR 200 MG
     Route: 048
     Dates: start: 20050220, end: 20111120

REACTIONS (1)
  - NO ADVERSE EVENT [None]
